FAERS Safety Report 5418065-7 (Version None)
Quarter: 2007Q3

REPORT INFORMATION
  Report Type: 
  Country: None (occurrence: None)
  Receive Date: 20070817
  Receipt Date: 20070806
  Transmission Date: 20080115
  Serious: Yes (Other)
  Sender: FDA-Public Use
  Company Number: GB-AMGEN-UK238141

PATIENT
  Age: 15 Year
  Sex: Female

DRUGS (1)
  1. KINERET [Suspect]
     Indication: PRE-EXISTING DISEASE
     Route: 065
     Dates: start: 20070729

REACTIONS (3)
  - BLOOD LACTATE DEHYDROGENASE INCREASED [None]
  - HAEMOGLOBIN DECREASED [None]
  - HAEMOLYSIS [None]
